FAERS Safety Report 7065620-7 (Version None)
Quarter: 2010Q4

REPORT INFORMATION
  Report Type: 
  Country: None (occurrence: None)
  Receive Date: 20101027
  Receipt Date: 20101020
  Transmission Date: 20110411
  Serious: Yes (Other)
  Sender: FDA-Public Use
  Company Number: US-MYLANLABS-2010S1019098

PATIENT
  Age: 84 Year
  Sex: Male
  Weight: 64.41 kg

DRUGS (2)
  1. METOPROLOL TARTRATE [Suspect]
     Indication: BLOOD PRESSURE INCREASED
     Route: 048
     Dates: start: 20070101
  2. PRAVASTATIN [Concomitant]

REACTIONS (2)
  - ARRHYTHMIA [None]
  - HEART RATE INCREASED [None]
